FAERS Safety Report 18259777 (Version 30)
Quarter: 2025Q2

REPORT INFORMATION
  Report Type: Report from Study
  Country: US (occurrence: US)
  Receive Date: 20200912
  Receipt Date: 20250616
  Transmission Date: 20250716
  Serious: Yes (Other)
  Sender: TAKEDA
  Company Number: US-SHIRE-US202029725

PATIENT
  Age: 67 Year
  Sex: Female
  Weight: 76 kg

DRUGS (50)
  1. HUMAN IMMUNOGLOBULIN G [Suspect]
     Active Substance: HUMAN IMMUNOGLOBULIN G
     Indication: Immunodeficiency common variable
     Dosage: 35 GRAM, Q4WEEKS
  2. HUMAN IMMUNOGLOBULIN G [Suspect]
     Active Substance: HUMAN IMMUNOGLOBULIN G
     Dosage: 35 GRAM, Q5WEEKS
  3. HUMAN IMMUNOGLOBULIN G [Suspect]
     Active Substance: HUMAN IMMUNOGLOBULIN G
     Dosage: 35 GRAM, Q4WEEKS
  4. HUMAN IMMUNOGLOBULIN G [Suspect]
     Active Substance: HUMAN IMMUNOGLOBULIN G
     Dosage: 35 GRAM, Q4WEEKS
  5. DIPHENHYDRAMINE [Concomitant]
     Active Substance: DIPHENHYDRAMINE
  6. ZOLOFT [Concomitant]
     Active Substance: SERTRALINE HYDROCHLORIDE
  7. CYANOCOBALAMIN [Concomitant]
     Active Substance: CYANOCOBALAMIN
  8. DEXAMETHASONE SODIUM PHOSPHATE [Concomitant]
     Active Substance: DEXAMETHASONE SODIUM PHOSPHATE
  9. VITAMIN D3 [Concomitant]
     Active Substance: CHOLECALCIFEROL
  10. EPINEPHRINE [Concomitant]
     Active Substance: EPINEPHRINE
  11. FEXOFENADINE HYDROCHLORIDE [Concomitant]
     Active Substance: FEXOFENADINE HYDROCHLORIDE
  12. SODIUM CHLORIDE [Concomitant]
     Active Substance: SODIUM CHLORIDE
  13. METFORMIN [Concomitant]
     Active Substance: METFORMIN HYDROCHLORIDE
  14. NURTEC ODT [Concomitant]
     Active Substance: RIMEGEPANT SULFATE
  15. ALLEGRA ALLERGY [Concomitant]
     Active Substance: FEXOFENADINE HYDROCHLORIDE
  16. BRUKINSA [Concomitant]
     Active Substance: ZANUBRUTINIB
  17. PEPCID [Concomitant]
     Active Substance: FAMOTIDINE
  18. ACETAMINOPHEN [Concomitant]
     Active Substance: ACETAMINOPHEN
  19. ZINC [Concomitant]
     Active Substance: ZINC
  20. SINGULAIR [Concomitant]
     Active Substance: MONTELUKAST SODIUM
  21. SODIUM CHLORIDE [Concomitant]
     Active Substance: SODIUM CHLORIDE
  22. ONDANSETRON [Concomitant]
     Active Substance: ONDANSETRON
  23. TRIPLE MAGNESIUM COMPLEX [Concomitant]
  24. CEFUROXIME [Concomitant]
     Active Substance: CEFUROXIME
  25. DEXAMETHASONE INTENSOL [Concomitant]
     Active Substance: DEXAMETHASONE
  26. CALQUENCE [Concomitant]
     Active Substance: ACALABRUTINIB
  27. MOBIC [Concomitant]
     Active Substance: MELOXICAM
  28. ADVAIR HFA [Concomitant]
     Active Substance: FLUTICASONE PROPIONATE\SALMETEROL XINAFOATE
  29. LIDOCAINE [Concomitant]
     Active Substance: LIDOCAINE
  30. FAMOTIDINE [Concomitant]
     Active Substance: FAMOTIDINE
  31. Lmx [Concomitant]
  32. MUPIROCIN [Concomitant]
     Active Substance: MUPIROCIN
  33. DEXAMETHASONE [Concomitant]
     Active Substance: DEXAMETHASONE
  34. FEXOFENADINE [Concomitant]
     Active Substance: FEXOFENADINE HYDROCHLORIDE
  35. MELOXICAM [Concomitant]
     Active Substance: MELOXICAM
  36. CYCLOPHOSPHAMIDE [Concomitant]
     Active Substance: CYCLOPHOSPHAMIDE
     Indication: Product used for unknown indication
  37. ADVAIR HFA [Concomitant]
     Active Substance: FLUTICASONE PROPIONATE\SALMETEROL XINAFOATE
  38. ZOFRAN [Concomitant]
     Active Substance: ONDANSETRON HYDROCHLORIDE
  39. ALLEGRA [Concomitant]
     Active Substance: FEXOFENADINE HYDROCHLORIDE
  40. ALLOPURINOL [Concomitant]
     Active Substance: ALLOPURINOL
  41. PROCHLORPERAZINE MALEATE [Concomitant]
     Active Substance: PROCHLORPERAZINE MALEATE
  42. CHLORAMBUCIL [Concomitant]
     Active Substance: CHLORAMBUCIL
  43. DIPHENHYDRAMINE HYDROCHLORIDE [Concomitant]
     Active Substance: DIPHENHYDRAMINE HYDROCHLORIDE
  44. OZEMPIC [Concomitant]
     Active Substance: SEMAGLUTIDE
  45. BREO ELLIPTA [Concomitant]
     Active Substance: FLUTICASONE FUROATE\VILANTEROL TRIFENATATE
  46. IVIZIA DRY EYE [Concomitant]
     Active Substance: POVIDONE
  47. PATADAY ONCE DAILY RELIEF [Concomitant]
     Active Substance: OLOPATADINE HYDROCHLORIDE
  48. LEUKERAN [Concomitant]
     Active Substance: CHLORAMBUCIL
  49. AMANTADINE [Concomitant]
     Active Substance: AMANTADINE
  50. ONDANSETRON HYDROCHLORIDE [Concomitant]
     Active Substance: ONDANSETRON HYDROCHLORIDE

REACTIONS (27)
  - Non-Hodgkin^s lymphoma [Unknown]
  - Follicular lymphoma [Unknown]
  - Infusion related reaction [Unknown]
  - Discharge [Unknown]
  - Seasonal allergy [Not Recovered/Not Resolved]
  - Bronchitis [Not Recovered/Not Resolved]
  - Candida infection [Unknown]
  - Insurance issue [Unknown]
  - Product use issue [Unknown]
  - Product distribution issue [Unknown]
  - COVID-19 [Unknown]
  - Poor venous access [Unknown]
  - Viral infection [Unknown]
  - Urinary tract infection [Unknown]
  - Multiple allergies [Unknown]
  - Illness [Unknown]
  - Sinusitis [Not Recovered/Not Resolved]
  - Upper respiratory tract infection [Unknown]
  - Cough [Unknown]
  - Malaise [Unknown]
  - Chest discomfort [Unknown]
  - Dyspnoea [Unknown]
  - Hypersensitivity [Unknown]
  - Nausea [Recovered/Resolved]
  - Dizziness [Unknown]
  - Headache [Unknown]
  - Neck pain [Unknown]

NARRATIVE: CASE EVENT DATE: 20241001
